FAERS Safety Report 6237284-3 (Version None)
Quarter: 2009Q2

REPORT INFORMATION
  Report Type: 
  Country: None (occurrence: None)
  Receive Date: 20090619
  Receipt Date: 20090619
  Transmission Date: 20091009
  Serious: Yes (Hospitalization, Other)
  Sender: FDA-Public Use
  Company Number: US-PFIZER INC-2009213230

PATIENT
  Sex: Male
  Weight: 111 kg

DRUGS (7)
  1. LYRICA [Suspect]
     Indication: FIBROMYALGIA
     Dosage: 150 MG, 3X/DAY
     Dates: start: 20081104
  2. OXYCODONE HCL [Concomitant]
     Dosage: UNK
  3. XANAX [Concomitant]
     Dosage: UNK
  4. ELAVIL [Concomitant]
     Dosage: 50 MG
  5. BACLOFEN [Concomitant]
     Dosage: 20 MG, 3X/DAY
  6. PERCOCET [Concomitant]
     Dosage: 325 MG, UNK
  7. ULTRAM ER [Concomitant]
     Dosage: 200 MG, UNK

REACTIONS (1)
  - GRAND MAL CONVULSION [None]
